FAERS Safety Report 5778397-X (Version None)
Quarter: 2008Q2

REPORT INFORMATION
  Report Type: 
  Country: None (occurrence: None)
  Receive Date: 20080618
  Receipt Date: 20080618
  Transmission Date: 20081010
  Serious: Yes (Hospitalization)
  Sender: FDA-Public Use
  Company Number: None

PATIENT
  Age: 73 Year
  Sex: Male
  Weight: 87.2 kg

DRUGS (1)
  1. SULFAMETHOXAZOLE AND TRIMETHOPRIM [Suspect]
     Indication: PROSTATITIS
     Dosage: 1 TAB BID PO
     Route: 048
     Dates: start: 20080329, end: 20080422

REACTIONS (9)
  - ABDOMINAL PAIN [None]
  - BALANITIS [None]
  - CHILLS [None]
  - COUGH [None]
  - HYPOAESTHESIA [None]
  - HYPOVOLAEMIA [None]
  - INFLAMMATION [None]
  - PROSTATITIS [None]
  - RENAL FAILURE ACUTE [None]
